FAERS Safety Report 13506571 (Version 1)
Quarter: 2017Q2

REPORT INFORMATION
  Report Type: Spontaneous
  Country: US (occurrence: US)
  Receive Date: 20170502
  Receipt Date: 20170502
  Transmission Date: 20170830
  Serious: No
  Sender: FDA-Public Use
  Company Number: US-ROCHE-1421720

PATIENT
  Sex: Female

DRUGS (1)
  1. AVASTIN [Suspect]
     Active Substance: BEVACIZUMAB
     Indication: COLORECTAL CANCER
     Dosage: EVERY 2 WEEKS
     Route: 042
     Dates: start: 20140408

REACTIONS (4)
  - Chills [Unknown]
  - Headache [Unknown]
  - Urinary tract infection [Unknown]
  - Hypertension [Unknown]
